FAERS Safety Report 25547159 (Version 1)
Quarter: 2025Q3

REPORT INFORMATION
  Report Type: Spontaneous
  Country: US (occurrence: US)
  Receive Date: 20250714
  Receipt Date: 20250714
  Transmission Date: 20251021
  Serious: No
  Sender: BOEHRINGER INGELHEIM
  Company Number: US-Komodo Health-a23aa000008lSPFAA2

PATIENT
  Sex: Female

DRUGS (1)
  1. JARDIANCE [Suspect]
     Active Substance: EMPAGLIFLOZIN
     Indication: Insulin resistance

REACTIONS (4)
  - Off label use [Unknown]
  - Blood insulin decreased [Unknown]
  - Blood testosterone decreased [Unknown]
  - Maternal exposure during pregnancy [Unknown]
